FAERS Safety Report 24789647 (Version 1)
Quarter: 2024Q4

REPORT INFORMATION
  Report Type: Spontaneous
  Country: JP (occurrence: JP)
  Receive Date: 20241230
  Receipt Date: 20241230
  Transmission Date: 20250114
  Serious: Yes (Hospitalization)
  Sender: EISAI
  Company Number: JP-Eisai-202412748_LUN_P_1

PATIENT
  Age: 85 Year
  Sex: Female

DRUGS (6)
  1. LEMBOREXANT [Suspect]
     Active Substance: LEMBOREXANT
     Indication: Insomnia
     Dosage: DOSE AND FREQUENCY UNKNOWN
     Route: 048
  2. ESZOPICLONE [Suspect]
     Active Substance: ESZOPICLONE
     Indication: Insomnia
     Dosage: DOSE AND FREQUENCY UNKNOWN
     Route: 048
  3. RAMELTEON [Concomitant]
     Active Substance: RAMELTEON
     Indication: Insomnia
     Dosage: DOSE AND FREQUENCY UNKNOWN
     Route: 065
  4. RISPERIDONE [Concomitant]
     Active Substance: RISPERIDONE
     Indication: Dementia
     Dosage: DOSE AND FREQUENCY UNKNOWN
     Route: 065
  5. PREGABALIN [Concomitant]
     Active Substance: PREGABALIN
     Indication: Product used for unknown indication
     Dosage: DOSE AND FREQUENCY UNKNOWN
     Route: 065
  6. BROTIZOLAM [Concomitant]
     Active Substance: BROTIZOLAM
     Indication: Product used for unknown indication
     Dosage: DOSE AND FREQUENCY UNKNOWN
     Route: 065

REACTIONS (3)
  - Dysphagia [Recovering/Resolving]
  - Hyporesponsive to stimuli [Not Recovered/Not Resolved]
  - Oxygen saturation decreased [Unknown]
